FAERS Safety Report 6198451-0 (Version None)
Quarter: 2009Q2

REPORT INFORMATION
  Report Type: 
  Country: None (occurrence: None)
  Receive Date: 20090521
  Receipt Date: 20090513
  Transmission Date: 20091009
  Serious: Yes (Death)
  Sender: FDA-Public Use
  Company Number: JP-BAXTER-2009BH008627

PATIENT
  Age: 86 Year
  Sex: Male

DRUGS (1)
  1. EXTRANEAL [Suspect]
     Indication: RENAL FAILURE
     Route: 033
     Dates: start: 20080410, end: 20090501

REACTIONS (1)
  - PNEUMONIA [None]
